FAERS Safety Report 24254981 (Version 1)
Quarter: 2024Q3

REPORT INFORMATION
  Report Type: Spontaneous
  Country: US (occurrence: US)
  Receive Date: 20240827
  Receipt Date: 20240827
  Transmission Date: 20241016
  Serious: No
  Sender: PFIZER
  Company Number: US-PFIZER INC-202400231775

PATIENT
  Age: 62 Year
  Sex: Female

DRUGS (3)
  1. XELJANZ [Interacting]
     Active Substance: TOFACITINIB CITRATE
     Dosage: UNK
  2. LITFULO [Interacting]
     Active Substance: RITLECITINIB TOSYLATE
     Indication: Alopecia areata
     Dosage: 50 MG, 1X/DAY
  3. TOFACITINIB [Suspect]
     Active Substance: TOFACITINIB
     Dosage: TOFACITINIB (BULK) 100% POWDER

REACTIONS (3)
  - Drug interaction [Unknown]
  - Off label use [Unknown]
  - Product use issue [Unknown]
